FAERS Safety Report 7721561-0 (Version None)
Quarter: 2011Q3

REPORT INFORMATION
  Report Type: 
  Country: None (occurrence: None)
  Receive Date: 20110831
  Receipt Date: 20110822
  Transmission Date: 20111222
  Serious: Yes (Hospitalization)
  Sender: FDA-Public Use
  Company Number: CH-CEPHALON-2011004515

PATIENT
  Sex: Female

DRUGS (8)
  1. TREANDA [Suspect]
     Indication: LYMPHOMA
     Route: 042
     Dates: start: 20110816
  2. RITUXIMAB [Suspect]
     Indication: LYMPHOMA
     Dates: start: 20110816, end: 20110816
  3. ATORVASTATIN CALCIUM [Concomitant]
  4. ASPIRIN [Concomitant]
     Dates: end: 20110820
  5. DIGOXIN [Concomitant]
  6. TENORMIN [Concomitant]
  7. LENALIDOMIDE [Suspect]
     Indication: LYMPHOMA
     Route: 048
     Dates: start: 20110816
  8. TORSEMIDE [Concomitant]

REACTIONS (2)
  - TROPONIN INCREASED [None]
  - CHEST PAIN [None]
